FAERS Safety Report 7575004-0 (Version None)
Quarter: 2011Q2

REPORT INFORMATION
  Report Type: 
  Country: None (occurrence: None)
  Receive Date: 20110627
  Receipt Date: 20091120
  Transmission Date: 20111010
  Serious: Yes (Death, Hospitalization, Other)
  Sender: FDA-Public Use
  Company Number: US-BAYER-200941008NA

PATIENT
  Age: 70 Year
  Sex: Male
  Weight: 69 kg

DRUGS (16)
  1. TRASYLOL [Suspect]
     Indication: CORONARY ARTERY BYPASS
     Dosage: 200 ML LOADING DOSE
     Route: 042
     Dates: start: 20050209, end: 20050209
  2. TRASYLOL [Suspect]
     Dosage: 50 ML/HR INFUSION
     Route: 042
     Dates: start: 20050209, end: 20050209
  3. FENTANYL [Concomitant]
     Dosage: 100MCG/2ML ONCE
     Route: 042
     Dates: start: 20050209, end: 20050209
  4. PLAVIX [Concomitant]
     Dosage: 75 MG, QD
     Route: 048
  5. TRASYLOL [Suspect]
     Indication: AORTIC VALVE REPLACEMENT
     Dosage: 1 ML, UNK, TEST DOSE
     Route: 042
     Dates: start: 20050209, end: 20050209
  6. ZOCOR [Concomitant]
     Dosage: 40 MG, QD
     Route: 048
  7. MIDAZOLAM HCL [Concomitant]
     Dosage: 5 MG, ONCE
     Route: 042
     Dates: start: 20050209, end: 20050209
  8. RED BLOOD CELLS [Concomitant]
     Dosage: 3 U, UNK
     Route: 042
     Dates: start: 20050209
  9. TRASYLOL [Suspect]
     Indication: MITRAL VALVE REPAIR
     Dosage: 200 ML CARDIOPULMONARY BYPASS PRIME
     Dates: start: 20050209, end: 20050209
  10. BETAPACE [Concomitant]
     Dosage: 80 MG, BID
     Route: 048
  11. HEPARIN [Concomitant]
     Dosage: 65000 U, ONCE
     Route: 042
     Dates: start: 20050209, end: 20050209
  12. PROTAMINE SULFATE [Concomitant]
     Dosage: 350 MG, ONCE
     Route: 042
     Dates: start: 20050209, end: 20050209
  13. ANCEF [Concomitant]
     Dosage: 2 G, ONCE
     Route: 042
     Dates: start: 20050209, end: 20050209
  14. ACETYLSALICYLIC ACID SRT [Concomitant]
  15. HYDROCHLOROTHIAZIDE [Concomitant]
     Dosage: 12.5 MG, QD
     Route: 048
  16. SODIUM NITROPRUSSIDE [Concomitant]
     Dosage: 100 MG, ONCE
     Route: 042
     Dates: start: 20050209, end: 20050209

REACTIONS (9)
  - DEATH [None]
  - INJURY [None]
  - PAIN [None]
  - UNEVALUABLE EVENT [None]
  - DEPRESSION [None]
  - RENAL FAILURE [None]
  - ANXIETY [None]
  - FEAR [None]
  - ANHEDONIA [None]
